FAERS Safety Report 5606227-5 (Version None)
Quarter: 2008Q1

REPORT INFORMATION
  Report Type: 
  Country: None (occurrence: None)
  Receive Date: 20080129
  Receipt Date: 20070227
  Transmission Date: 20080703
  Serious: No
  Sender: FDA-Public Use
  Company Number: A0641225A

PATIENT
  Sex: Male

DRUGS (1)
  1. BUPROPION HCL [Suspect]
     Dosage: 100MG TWICE PER DAY
     Dates: start: 20051101

REACTIONS (2)
  - INJURY [None]
  - TINNITUS [None]
